FAERS Safety Report 9507032 (Version 1)
Quarter: 2013Q3

REPORT INFORMATION
  Report Type: Spontaneous
  Country: RU (occurrence: RU)
  Receive Date: 20130909
  Receipt Date: 20130909
  Transmission Date: 20140515
  Serious: Yes (Life-Threatening)
  Sender: FDA-Public Use
  Company Number: RU-TEVA-430121ISR

PATIENT
  Age: 22 Year
  Sex: Female

DRUGS (1)
  1. COPAXON [Suspect]
     Route: 058

REACTIONS (2)
  - Asphyxia [Recovered/Resolved]
  - Rash papular [Recovered/Resolved]
